FAERS Safety Report 4488724-1 (Version None)
Quarter: 2004Q4

REPORT INFORMATION
  Report Type: 
  Country: None (occurrence: None)
  Receive Date: 20041025
  Receipt Date: 20041012
  Transmission Date: 20050328
  Serious: Yes (Hospitalization)
  Sender: FDA-Public Use
  Company Number: 2004077345

PATIENT
  Sex: 0

DRUGS (1)
  1. NORVASC [Suspect]
     Indication: HYPERTENSION
     Dosage: ORAL
     Route: 048

REACTIONS (4)
  - ERYTHEMA MULTIFORME [None]
  - LYMPHOCYTE COUNT DECREASED [None]
  - PYREXIA [None]
  - VIRAL INFECTION [None]
